FAERS Safety Report 9150054 (Version 1)
Quarter: 2013Q1

REPORT INFORMATION
  Report Type: Spontaneous
  Country: DE (occurrence: None)
  Receive Date: 20130131
  Receipt Date: 20130131
  Transmission Date: 20140127
  Serious: Yes (Hospitalization, Other)
  Sender: FDA-Public Use
  Company Number: 2013VX000376

PATIENT
  Sex: 0

DRUGS (5)
  1. TASMAR [Suspect]
     Indication: PARKINSON^S DISEASE
     Dates: start: 201211, end: 201301
  2. MADOPAR [Concomitant]
  3. ROTIGOTINE [Concomitant]
  4. RAMIPRIL [Concomitant]
  5. ALFUNZOSIN [Concomitant]

REACTIONS (2)
  - Urinary retention [None]
  - Bacterial pyelonephritis [None]
